APPROVED DRUG PRODUCT: LANIAZID
Active Ingredient: ISONIAZID
Strength: 300MG
Dosage Form/Route: TABLET;ORAL
Application: A089776 | Product #001
Applicant: CHARTWELL MOLECULAR HOLDINGS LLC
Approved: Jun 13, 1988 | RLD: No | RS: No | Type: DISCN